FAERS Safety Report 19938375 (Version 2)
Quarter: 2021Q4

REPORT INFORMATION
  Report Type: Spontaneous
  Country: GR (occurrence: GR)
  Receive Date: 20211011
  Receipt Date: 20211015
  Transmission Date: 20220303
  Serious: Yes (Death, Disabling, Other)
  Sender: FDA-Public Use
  Company Number: GR-GILEAD-2021-0551477

PATIENT
  Age: 46 Year
  Sex: Female
  Weight: 50 kg

DRUGS (5)
  1. TRODELVY [Suspect]
     Active Substance: SACITUZUMAB GOVITECAN-HZIY
     Indication: Triple negative breast cancer
     Dosage: UNK
     Route: 042
     Dates: start: 20210302
  2. DEXAMETHASONE [Concomitant]
     Active Substance: DEXAMETHASONE
     Route: 048
  3. FENTANYL [Concomitant]
     Active Substance: FENTANYL
     Route: 062
  4. LEVETIRACETAM [Concomitant]
     Active Substance: LEVETIRACETAM
     Route: 048
  5. ACETAMINOPHEN [Concomitant]
     Active Substance: ACETAMINOPHEN
     Route: 048

REACTIONS (1)
  - Disease progression [Fatal]

NARRATIVE: CASE EVENT DATE: 20210830
